FAERS Safety Report 4784191-9 (Version None)
Quarter: 2005Q3

REPORT INFORMATION
  Report Type: 
  Country: None (occurrence: None)
  Receive Date: 20050928
  Receipt Date: 20050913
  Transmission Date: 20060218
  Serious: Yes (Hospitalization)
  Sender: FDA-Public Use
  Company Number: 2005P1000428

PATIENT
  Age: 85 Year
  Sex: Male
  Weight: 78 kg

DRUGS (8)
  1. RETEVASE [Suspect]
     Indication: ACUTE MYOCARDIAL INFARCTION
     Dosage: IV
     Route: 042
     Dates: start: 20050309, end: 20050309
  2. ABCIXIMAB [Suspect]
     Indication: ACUTE MYOCARDIAL INFARCTION
     Dosage: IV
     Route: 042
     Dates: start: 20050309
  3. ASPIRIN [Concomitant]
  4. CLOPIDOGREL BISULFATE [Concomitant]
  5. ATORVASTATIN [Concomitant]
  6. CARVEDILOL [Concomitant]
  7. TAMSULOSIN [Concomitant]
  8. CANDESARTAN [Concomitant]

REACTIONS (3)
  - FALL [None]
  - HYPONATRAEMIA [None]
  - LOSS OF CONSCIOUSNESS [None]
